FAERS Safety Report 5796669-X (Version None)
Quarter: 2008Q2

REPORT INFORMATION
  Report Type: 
  Country: None (occurrence: None)
  Receive Date: 20080630
  Receipt Date: 20080630
  Transmission Date: 20081010
  Serious: Yes (Hospitalization)
  Sender: FDA-Public Use
  Company Number: None

PATIENT
  Age: 45 Year
  Sex: Female
  Weight: 67.1324 kg

DRUGS (1)
  1. INDOMETHACIN [Suspect]
     Indication: GOUT
     Dosage: 50MG ONE EVERY 8 HRS. PO
     Route: 048
     Dates: start: 20080625, end: 20080625

REACTIONS (5)
  - DIZZINESS [None]
  - DYSKINESIA [None]
  - HYPERSENSITIVITY [None]
  - NAUSEA [None]
  - PRESYNCOPE [None]
